FAERS Safety Report 18764872 (Version 1)
Quarter: 2021Q1

REPORT INFORMATION
  Report Type: Other
  Country: US (occurrence: US)
  Receive Date: 20210121
  Receipt Date: 20210121
  Transmission Date: 20210419
  Serious: No
  Sender: FDA-Public Use
  Company Number: US-AMAG PHARMACEUTICALS, INC.-AMAG202004421

PATIENT
  Age: 29 Year
  Sex: Female

DRUGS (1)
  1. MAKENA [Suspect]
     Active Substance: HYDROXYPROGESTERONE CAPROATE
     Indication: PREMATURE DELIVERY
     Route: 058
     Dates: start: 20201119, end: 20201211

REACTIONS (5)
  - Depression [Unknown]
  - Pain in extremity [Unknown]
  - Crying [Unknown]
  - Affect lability [Unknown]
  - Limb discomfort [Unknown]

NARRATIVE: CASE EVENT DATE: 20201119
